FAERS Safety Report 10991359 (Version 2)
Quarter: 2015Q2

REPORT INFORMATION
  Report Type: Spontaneous
  Country: BR (occurrence: BR)
  Receive Date: 20150406
  Receipt Date: 20150515
  Transmission Date: 20150821
  Serious: Yes (Other)
  Sender: FDA-Public Use
  Company Number: BR-PFIZER INC-2015113842

PATIENT
  Age: 74 Year
  Sex: Female
  Weight: 61 kg

DRUGS (5)
  1. MODURETIC 5-50 [Concomitant]
     Active Substance: AMILORIDE HYDROCHLORIDE\HYDROCHLOROTHIAZIDE
     Dosage: UNK
  2. LYRICA [Suspect]
     Active Substance: PREGABALIN
     Indication: ANGIOPATHY
     Dosage: 1 TABLET AT NIGHT (75 MG AT NIGHT)
     Route: 048
     Dates: start: 20150304
  3. LYRICA [Suspect]
     Active Substance: PREGABALIN
     Indication: ARTHRALGIA
     Dosage: 1 TABLET OF STRENGTH 75 MG, 2X/DAY
     Route: 048
     Dates: start: 2015
  4. FLAVONOIDS [Concomitant]
     Dosage: UNK
  5. LYRICA [Suspect]
     Active Substance: PREGABALIN
     Indication: PAIN IN EXTREMITY
     Dosage: 1 TABLET OF STRENGTH 75 MG, AT NIGHT
     Route: 048
     Dates: start: 201501, end: 2015

REACTIONS (17)
  - Product use issue [Unknown]
  - Formication [Recovered/Resolved]
  - Hyperhidrosis [Recovered/Resolved]
  - Retching [Recovered/Resolved]
  - Peripheral coldness [Recovered/Resolved]
  - Swelling [Recovered/Resolved]
  - Faecal incontinence [Recovered/Resolved]
  - Dry skin [Recovered/Resolved]
  - Urinary incontinence [Recovered/Resolved]
  - Malaise [Recovered/Resolved]
  - Seizure [Recovered/Resolved]
  - Skin discolouration [Recovered/Resolved]
  - Somnolence [Recovered/Resolved]
  - Drug ineffective [Recovered/Resolved]
  - Burning sensation [Recovered/Resolved]
  - Feeling abnormal [Recovered/Resolved]
  - Hepatic pain [Recovered/Resolved]

NARRATIVE: CASE EVENT DATE: 2015
